FAERS Safety Report 5267241-5 (Version None)
Quarter: 2007Q1

REPORT INFORMATION
  Report Type: 
  Country: None (occurrence: None)
  Receive Date: 20070313
  Receipt Date: 20070307
  Transmission Date: 20070707
  Serious: Yes (Other)
  Sender: FDA-Public Use
  Company Number: 2007310369

PATIENT
  Age: 39 Year
  Sex: Female
  Weight: 49.8957 kg

DRUGS (2)
  1. SUDAFED 12 HOUR [Suspect]
     Indication: HYPERSENSITIVITY
     Dosage: 1 CAPLET EVERY 12 HOURS (2 IN 1 D)
     Dates: start: 20070303
  2. ALLEGRA [Concomitant]

REACTIONS (2)
  - HALLUCINATION, VISUAL [None]
  - RASH [None]
